FAERS Safety Report 5303547-9 (Version None)
Quarter: 2007Q2

REPORT INFORMATION
  Report Type: 
  Country: None (occurrence: None)
  Receive Date: 20070420
  Receipt Date: 20070410
  Transmission Date: 20071010
  Serious: Yes (Other)
  Sender: FDA-Public Use
  Company Number: AU-AMGEN-US217637

PATIENT
  Sex: Female
  Weight: 50 kg

DRUGS (6)
  1. ARANESP [Suspect]
     Indication: DIALYSIS
     Route: 042
     Dates: start: 20060803
  2. CALTRATE [Concomitant]
  3. LOSEC [Concomitant]
  4. DILANTIN [Concomitant]
  5. ROCALTROL [Concomitant]
  6. MYLANTA [Concomitant]

REACTIONS (6)
  - ANAEMIA [None]
  - ARTERIOVENOUS FISTULA OPERATION [None]
  - DYSPNOEA [None]
  - FATIGUE [None]
  - IRON DEFICIENCY [None]
  - LETHARGY [None]
